FAERS Safety Report 4325762-3 (Version None)
Quarter: 2004Q1

REPORT INFORMATION
  Report Type: 
  Country: None (occurrence: None)
  Receive Date: 20040324
  Receipt Date: 20040311
  Transmission Date: 20041129
  Serious: Yes (Life-Threatening, Other)
  Sender: FDA-Public Use
  Company Number: JP_040302743

PATIENT
  Age: 51 Year
  Sex: Male
  Weight: 65 kg

DRUGS (6)
  1. ZYPREXA [Suspect]
     Indication: SCHIZOPHRENIA
     Dosage: 5 MG/2 DAY
     Dates: start: 20040128, end: 20040302
  2. SEROQUEL [Concomitant]
  3. AKINETON [Concomitant]
  4. LANDSEN (CLONAZEPAM) [Concomitant]
  5. NITRAZEPAM [Concomitant]
  6. DIAZEPAM [Concomitant]

REACTIONS (6)
  - ASPIRATION [None]
  - CARDIO-RESPIRATORY ARREST [None]
  - CHOKING [None]
  - LOSS OF CONSCIOUSNESS [None]
  - TREATMENT NONCOMPLIANCE [None]
  - VOMITING [None]
